FAERS Safety Report 8773713 (Version 3)
Quarter: 2012Q4

REPORT INFORMATION
  Report Type: 
  Country: FR (occurrence: FR)
  Receive Date: 20120907
  Receipt Date: 20121119
  Transmission Date: 20130627
  Serious: Yes (Hospitalization)
  Sender: FDA-Public Use
  Company Number: FR-MPIJNJ-2012-06173

PATIENT

DRUGS (7)
  1. VELCADE [Suspect]
     Indication: MULTIPLE MYELOMA
     Dosage: UNK
     Route: 042
     Dates: start: 20120719
  2. DEXAMETHASONE [Suspect]
     Indication: MULTIPLE MYELOMA
     Dosage: 40 mg, UNK
     Route: 048
     Dates: start: 20120726, end: 20120813
  3. THALIDOMIDE [Suspect]
     Indication: MULTIPLE MYELOMA
     Dosage: 100 mg, UNK
     Route: 048
     Dates: start: 20120719, end: 20120811
  4. OXYNORM [Concomitant]
  5. FORLAX [Concomitant]
  6. VOGALENE [Concomitant]
  7. XANAX [Concomitant]

REACTIONS (2)
  - Lung disorder [Recovering/Resolving]
  - Atrial fibrillation [Unknown]
